FAERS Safety Report 22202159 (Version 2)
Quarter: 2023Q2

REPORT INFORMATION
  Report Type: Spontaneous
  Country: IN (occurrence: IN)
  Receive Date: 20230412
  Receipt Date: 20230421
  Transmission Date: 20230722
  Serious: Yes (Other)
  Sender: FDA-Public Use
  Company Number: IN-002147023-NVSC2023IN081310

PATIENT
  Age: 26 Year
  Sex: Male

DRUGS (1)
  1. GLIVEC [Suspect]
     Active Substance: IMATINIB MESYLATE
     Indication: Chronic myeloid leukaemia recurrent
     Dosage: 400 MG, BID (2 X 400 MG)
     Route: 048
     Dates: start: 20160130, end: 20230108

REACTIONS (5)
  - Chronic myeloid leukaemia recurrent [Recovering/Resolving]
  - Malignant neoplasm progression [Recovering/Resolving]
  - Metastases to central nervous system [Recovering/Resolving]
  - Altered state of consciousness [Unknown]
  - Headache [Unknown]

NARRATIVE: CASE EVENT DATE: 20230108
